FAERS Safety Report 9486706 (Version 2)
Quarter: 2013Q3

REPORT INFORMATION
  Report Type: Report from Study
  Country: BR (occurrence: BR)
  Receive Date: 20130829
  Receipt Date: 20130919
  Transmission Date: 20140515
  Serious: Yes (Other)
  Sender: FDA-Public Use
  Company Number: BR-ROCHE-1266974

PATIENT
  Age: 48 Year
  Sex: Female
  Weight: 74 kg

DRUGS (6)
  1. XOLAIR [Suspect]
     Indication: ASTHMA
     Route: 065
     Dates: start: 2008
  2. PREDNISONE [Concomitant]
     Route: 065
  3. OMEPRAZOLE [Concomitant]
  4. MAREVAN [Concomitant]
  5. FORASEQ [Concomitant]
  6. MIFLASONE [Concomitant]

REACTIONS (8)
  - Cataract [Not Recovered/Not Resolved]
  - Asthma [Recovered/Resolved]
  - Retching [Unknown]
  - Lung infection [Recovered/Resolved]
  - Hiatus hernia [Recovered/Resolved]
  - Secretion discharge [Recovered/Resolved]
  - Pain [Not Recovered/Not Resolved]
  - Fatigue [Recovered/Resolved]
